FAERS Safety Report 24228229 (Version 1)
Quarter: 2024Q3

REPORT INFORMATION
  Report Type: Spontaneous
  Country: ES (occurrence: ES)
  Receive Date: 20240820
  Receipt Date: 20240820
  Transmission Date: 20241016
  Serious: Yes (Life-Threatening, Hospitalization)
  Sender: TEVA
  Company Number: None

PATIENT
  Age: 77 Year
  Sex: Male

DRUGS (1)
  1. ATENOLOL [Suspect]
     Active Substance: ATENOLOL
     Indication: Hypertension
     Dosage: ATENOLOL (356A)
     Route: 048
     Dates: start: 20120630, end: 20240602

REACTIONS (4)
  - Sinus bradycardia [Recovering/Resolving]
  - Cardiogenic shock [Recovered/Resolved]
  - Cardiac failure acute [Recovering/Resolving]
  - Hypotension [Recovering/Resolving]

NARRATIVE: CASE EVENT DATE: 20240602
